FAERS Safety Report 13851382 (Version 1)
Quarter: 2017Q3

REPORT INFORMATION
  Report Type: Spontaneous
  Country: CH (occurrence: CH)
  Receive Date: 20170810
  Receipt Date: 20170810
  Transmission Date: 20171127
  Serious: Yes (Hospitalization, Other)
  Sender: FDA-Public Use
  Company Number: CH-009507513-1708CHE002530

PATIENT
  Age: 46 Year
  Sex: Male
  Weight: 74.4 kg

DRUGS (9)
  1. SPRYCEL [Suspect]
     Active Substance: DASATINIB
     Indication: LEUKAEMIA
     Dosage: 70 MG, QD
     Route: 048
     Dates: start: 20170401, end: 20170405
  2. SPRYCEL [Suspect]
     Active Substance: DASATINIB
     Dosage: 140 MG, QD
     Route: 048
     Dates: start: 20170406
  3. LEVETIRACETAM. [Suspect]
     Active Substance: LEVETIRACETAM
     Indication: EPILEPSY
     Dosage: 1000MG, BID
     Route: 048
     Dates: start: 20170401
  4. NOXAFIL [Suspect]
     Active Substance: POSACONAZOLE
     Dosage: 200 MG (2 TABLETS) ONCE DAILY
     Route: 048
     Dates: start: 20170401, end: 20170407
  5. CHOLECALCIFEROL [Concomitant]
     Active Substance: CHOLECALCIFEROL
     Dosage: 1500 IU, BID
     Dates: start: 20170401
  6. LAMOTRIGIN ACTAVIS [Suspect]
     Active Substance: LAMOTRIGINE
     Indication: EPILEPSY
     Dosage: 200 MG, BID
     Dates: start: 20170401
  7. DAFALGAN [Concomitant]
     Active Substance: ACETAMINOPHEN
     Dosage: 1000MG, QID
     Dates: start: 20170401
  8. NOVALGIN (DIPYRONE) [Concomitant]
     Active Substance: DIPYRONE
     Dosage: 500 MG, UNK
     Dates: start: 20170401
  9. BACTRIM [Suspect]
     Active Substance: SULFAMETHOXAZOLE\TRIMETHOPRIM
     Dosage: 1 DF, TIW
     Dates: start: 20170401, end: 20170407

REACTIONS (3)
  - Electrocardiogram QT prolonged [Recovered/Resolved]
  - Pneumonia [Recovered/Resolved]
  - Disorientation [Unknown]

NARRATIVE: CASE EVENT DATE: 20170401
